FAERS Safety Report 4631132-0 (Version None)
Quarter: 2005Q2

REPORT INFORMATION
  Report Type: 
  Country: None (occurrence: None)
  Receive Date: 20050407
  Receipt Date: 20050407
  Transmission Date: 20051028
  Serious: Yes (Other)
  Sender: FDA-Public Use
  Company Number: None

PATIENT
  Age: 56 Year
  Sex: Female
  Weight: 77.1115 kg

DRUGS (1)
  1. FENTANYL PATCH   75 MCG  -  2 PATCHES   MYLAN [Suspect]
     Indication: CANCER PAIN
     Dosage: 75 MCG   2 PATCHES   TRANSDERMAL
     Route: 062
     Dates: start: 20050225, end: 20050325

REACTIONS (6)
  - FEELING ABNORMAL [None]
  - IMPAIRED WORK ABILITY [None]
  - MALAISE [None]
  - PAIN [None]
  - PHARMACEUTICAL PRODUCT COMPLAINT [None]
  - VOMITING [None]
